FAERS Safety Report 5372585-2 (Version None)
Quarter: 2007Q2

REPORT INFORMATION
  Report Type: 
  Country: None (occurrence: None)
  Receive Date: 20070627
  Receipt Date: 20070619
  Transmission Date: 20071010
  Serious: Yes (Other)
  Sender: FDA-Public Use
  Company Number: US-PFIZER INC-2007044783

PATIENT
  Sex: Female
  Weight: 54.4 kg

DRUGS (1)
  1. RELPAX [Suspect]
     Indication: MIGRAINE
     Dosage: DAILY DOSE:40MG
     Route: 048
     Dates: start: 20070516, end: 20070516

REACTIONS (4)
  - DYSPNOEA [None]
  - EYE SWELLING [None]
  - SPEECH DISORDER [None]
  - THROAT TIGHTNESS [None]
